FAERS Safety Report 6584910-5 (Version None)
Quarter: 2010Q1

REPORT INFORMATION
  Report Type: 
  Country: None (occurrence: None)
  Receive Date: 20100217
  Receipt Date: 20100215
  Transmission Date: 20100710
  Serious: Yes (Hospitalization)
  Sender: FDA-Public Use
  Company Number: JP-SANOFI-AVENTIS-2010SA008679

PATIENT
  Age: 69 Year
  Sex: Female
  Weight: 51 kg

DRUGS (8)
  1. ARAVA [Suspect]
     Indication: RHEUMATOID ARTHRITIS
     Route: 048
     Dates: end: 20100202
  2. ARAVA [Suspect]
     Route: 048
     Dates: start: 20040331
  3. ARAVA [Suspect]
     Route: 048
     Dates: start: 20031114, end: 20040318
  4. ARAVA [Suspect]
     Route: 048
     Dates: start: 20031111, end: 20031113
  5. ARAVA [Suspect]
     Route: 048
     Dates: start: 20100101
  6. PREDONINE [Concomitant]
     Dates: start: 19980924
  7. VOLTAREN [Concomitant]
     Dates: start: 19980924
  8. FERROMIA [Concomitant]
     Dates: start: 20030121

REACTIONS (1)
  - HEPATIC FUNCTION ABNORMAL [None]
